FAERS Safety Report 10524192 (Version 1)
Quarter: 2014Q4

REPORT INFORMATION
  Report Type: Spontaneous
  Country: US (occurrence: None)
  Receive Date: 20141015
  Receipt Date: 20141015
  Transmission Date: 20150528
  Serious: Yes (Other)
  Sender: FDA-Public Use
  Company Number: None

PATIENT
  Age: 85 Year
  Sex: Female
  Weight: 68.04 kg

DRUGS (1)
  1. IRBESARTAN. [Suspect]
     Active Substance: IRBESARTAN
     Indication: BLOOD PRESSURE
     Dates: start: 201308, end: 20140429

REACTIONS (8)
  - Diverticulitis [None]
  - Gastroduodenitis [None]
  - Nausea [None]
  - Colitis microscopic [None]
  - Vomiting [None]
  - Acquired oesophageal web [None]
  - Gastritis [None]
  - Diarrhoea [None]

NARRATIVE: CASE EVENT DATE: 201403
